FAERS Safety Report 16014690 (Version 1)
Quarter: 2019Q1

REPORT INFORMATION
  Report Type: Spontaneous
  Country: None (occurrence: US)
  Receive Date: 20190227
  Receipt Date: 20190227
  Transmission Date: 20190418
  Serious: No
  Sender: FDA-Public Use
  Company Number: US-MEDAC PHARMA, INC.-2063301

PATIENT
  Age: 75 Year
  Sex: Female
  Weight: 104.55 kg

DRUGS (8)
  1. PREDNISONE. [Concomitant]
     Active Substance: PREDNISONE
  2. LEUCOVORIN CALCIUM. [Concomitant]
     Active Substance: LEUCOVORIN CALCIUM
  3. FOLIC ACID. [Concomitant]
     Active Substance: FOLIC ACID
  4. RASUVO [Suspect]
     Active Substance: METHOTREXATE SODIUM
     Indication: POLYMYALGIA RHEUMATICA
     Dates: start: 201810
  5. LEVOTHYROXINE. [Concomitant]
     Active Substance: LEVOTHYROXINE
  6. DILTIAZEM. [Concomitant]
     Active Substance: DILTIAZEM
  7. SUCRALFATE. [Concomitant]
     Active Substance: SUCRALFATE
  8. ZETIA [Concomitant]
     Active Substance: EZETIMIBE

REACTIONS (1)
  - Product use in unapproved indication [None]

NARRATIVE: CASE EVENT DATE: 201810
